FAERS Safety Report 5777342-0 (Version None)
Quarter: 2008Q2

REPORT INFORMATION
  Report Type: 
  Country: None (occurrence: None)
  Receive Date: 20080618
  Receipt Date: 20080611
  Transmission Date: 20081010
  Serious: Yes (Disabling)
  Sender: FDA-Public Use
  Company Number: PHHY2008DE10706

PATIENT
  Sex: Male
  Weight: 68 kg

DRUGS (1)
  1. FLUVASTATIN [Suspect]
     Indication: HYPERCHOLESTEROLAEMIA
     Dosage: 80 MG, QD
     Route: 048
     Dates: start: 20050101, end: 20080101

REACTIONS (3)
  - MYOPATHY [None]
  - MYOSITIS [None]
  - WALKING DISABILITY [None]
